FAERS Safety Report 5913193-1 (Version None)
Quarter: 2008Q4

REPORT INFORMATION
  Report Type: 
  Country: None (occurrence: None)
  Receive Date: 20081009
  Receipt Date: 20080929
  Transmission Date: 20090506
  Serious: Yes (Hospitalization)
  Sender: FDA-Public Use
  Company Number: KR-JNJFOC-20080906498

PATIENT
  Age: 66 Year
  Sex: Female

DRUGS (1)
  1. REMICADE [Suspect]
     Indication: VASCULITIS
     Dosage: 3 DOSES
     Route: 042

REACTIONS (2)
  - DISSEMINATED TUBERCULOSIS [None]
  - OFF LABEL USE [None]
